APPROVED DRUG PRODUCT: FLOXIN
Active Ingredient: OFLOXACIN
Strength: 400MG **Federal Register determination that product was not discontinued or withdrawn for safety or effectiveness reasons**
Dosage Form/Route: TABLET;ORAL
Application: N019735 | Product #003
Applicant: JANSSEN PHARMACEUTICALS INC
Approved: Dec 28, 1990 | RLD: Yes | RS: No | Type: DISCN